FAERS Safety Report 8380987-5 (Version None)
Quarter: 2012Q2

REPORT INFORMATION
  Report Type: 
  Country: None (occurrence: None)
  Receive Date: 20120515
  Receipt Date: 20120504
  Transmission Date: 20120825
  Serious: Yes (Hospitalization)
  Sender: FDA-Public Use
  Company Number: 2012031811

PATIENT
  Age: 51 Year
  Sex: Male

DRUGS (7)
  1. PRIVIGEN [Suspect]
     Indication: POLYNEUROPATHY
     Dosage: 160 G, FIRST COURSE, 160 G, SECOND COURSE, INTRAVENOUS (NOT OTHERWISE SPECIFIED)
     Route: 042
     Dates: start: 20120213
  2. PRIVIGEN [Suspect]
     Indication: POLYNEUROPATHY
     Dosage: 160 G, FIRST COURSE, 160 G, SECOND COURSE, INTRAVENOUS (NOT OTHERWISE SPECIFIED)
     Route: 042
     Dates: start: 20120314
  3. CLONAZEPAM [Concomitant]
  4. ESOMEPRAZOLE MAGNESIUM [Concomitant]
  5. AMLODIPINE [Concomitant]
  6. ASPIRIN [Concomitant]
  7. MIRTAZAPINE [Concomitant]

REACTIONS (16)
  - TOXIC SKIN ERUPTION [None]
  - CHEILITIS [None]
  - HAEMATURIA [None]
  - ORAL DISCOMFORT [None]
  - ANAL EROSION [None]
  - OFF LABEL USE [None]
  - SKIN EXFOLIATION [None]
  - SKIN FISSURES [None]
  - DYSURIA [None]
  - BURNING SENSATION [None]
  - APHONIA [None]
  - RECTAL HAEMORRHAGE [None]
  - PRURITUS [None]
  - SKIN BURNING SENSATION [None]
  - COLITIS [None]
  - RASH [None]
